FAERS Safety Report 16000376 (Version 1)
Quarter: 2019Q1

REPORT INFORMATION
  Report Type: Report from Study
  Country: US (occurrence: US)
  Receive Date: 20190225
  Receipt Date: 20190225
  Transmission Date: 20190418
  Serious: Yes (Other)
  Sender: FDA-Public Use
  Company Number: US-MYLANLABS-2019M1016239

PATIENT

DRUGS (3)
  1. TRIAMCINOLONE [Suspect]
     Active Substance: TRIAMCINOLONE
     Indication: DIABETIC RETINAL OEDEMA
     Dosage: ADMINISTERED WITHOUT ADDING PRESERVATIVES AT COMPOUNDING
  2. TRIAMCINOLONE [Suspect]
     Active Substance: TRIAMCINOLONE
     Indication: DIABETIC RETINOPATHY
  3. VORICONAZOLE. [Suspect]
     Active Substance: VORICONAZOLE
     Indication: MYCOTIC ENDOPHTHALMITIS
     Route: 048

REACTIONS (5)
  - Product compounding quality issue [Unknown]
  - Transmission of an infectious agent via product [Unknown]
  - Off label use [Unknown]
  - Mycotic endophthalmitis [Not Recovered/Not Resolved]
  - Product contamination microbial [Unknown]
